FAERS Safety Report 8945274 (Version 1)
Quarter: 2012Q4

REPORT INFORMATION
  Report Type: 
  Country: BR (occurrence: BR)
  Receive Date: 20121205
  Receipt Date: 20121205
  Transmission Date: 20130627
  Serious: Yes (Other)
  Sender: FDA-Public Use
  Company Number: BR-PFIZER INC-2012301537

PATIENT
  Age: 51 Year
  Sex: Male
  Weight: 74 kg

DRUGS (3)
  1. CELEBRA [Suspect]
     Indication: SPINAL DISORDER
     Dosage: 200 mg, 2x/day
     Route: 048
     Dates: start: 201011, end: 201103
  2. CELEBRA [Suspect]
     Indication: ARTHROSIS
  3. CELEBRA [Suspect]
     Indication: PAIN

REACTIONS (3)
  - Bone disorder [Unknown]
  - Nerve compression [Unknown]
  - Joint lock [Not Recovered/Not Resolved]
